FAERS Safety Report 13291106 (Version 2)
Quarter: 2017Q2

REPORT INFORMATION
  Report Type: Spontaneous
  Country: CN (occurrence: CN)
  Receive Date: 20170302
  Receipt Date: 20170421
  Transmission Date: 20170830
  Serious: Yes (Hospitalization)
  Sender: FDA-Public Use
  Company Number: CN-JNJFOC-20170300241

PATIENT
  Age: 55 Year
  Sex: Male

DRUGS (7)
  1. RISPERDAL [Suspect]
     Active Substance: RISPERIDONE
     Indication: SCHIZOPHRENIA
     Dosage: TOOK 30 TABLETS OF STRENGTH 1 MG
     Route: 065
  2. INVEGA [Suspect]
     Active Substance: PALIPERIDONE
     Indication: SCHIZOPHRENIA
     Dosage: 3MG PLUS 6MG PER DAY
     Route: 065
     Dates: start: 201702
  3. INVEGA [Suspect]
     Active Substance: PALIPERIDONE
     Indication: SCHIZOPHRENIA
     Dosage: 3MG PLUS 6MG PER DAY
     Route: 065
  4. INVEGA [Suspect]
     Active Substance: PALIPERIDONE
     Indication: SCHIZOPHRENIA
     Route: 065
     Dates: start: 201702
  5. RISPERDAL [Suspect]
     Active Substance: RISPERIDONE
     Indication: SCHIZOPHRENIA
     Dosage: 1MG TABLET IN THE NOON AND 2MG TABLET IN THE EVENING
     Route: 065
     Dates: start: 201702
  6. RISPERDAL [Suspect]
     Active Substance: RISPERIDONE
     Indication: SCHIZOPHRENIA
     Dosage: ONE TABLET IN THE NOON AND TWO TABLETS IN THE EVENING
     Route: 065
     Dates: start: 2007, end: 201512
  7. INVEGA [Suspect]
     Active Substance: PALIPERIDONE
     Indication: SCHIZOPHRENIA
     Route: 065

REACTIONS (6)
  - Schizophrenia [Recovering/Resolving]
  - Duodenal ulcer [Recovered/Resolved]
  - Drug ineffective [Unknown]
  - Intentional overdose [Unknown]
  - Intentional product misuse [Unknown]
  - Vomiting [Unknown]
